FAERS Safety Report 22648152 (Version 1)
Quarter: 2023Q2

REPORT INFORMATION
  Report Type: Spontaneous
  Country: BR (occurrence: BR)
  Receive Date: 20230628
  Receipt Date: 20230628
  Transmission Date: 20230721
  Serious: Yes (Disabling, Other)
  Sender: FDA-Public Use
  Company Number: BR-CHEPLA-2023007750

PATIENT
  Sex: Female
  Weight: 72 kg

DRUGS (15)
  1. CLONAZEPAM [Suspect]
     Active Substance: CLONAZEPAM
     Indication: Anxiety
     Route: 042
     Dates: start: 2013, end: 2013
  2. CLONAZEPAM [Suspect]
     Active Substance: CLONAZEPAM
     Indication: Seizure
     Route: 042
     Dates: start: 2013, end: 2013
  3. CLONAZEPAM [Suspect]
     Active Substance: CLONAZEPAM
     Indication: Insomnia
     Route: 042
     Dates: start: 2013, end: 2013
  4. CLONAZEPAM [Suspect]
     Active Substance: CLONAZEPAM
     Indication: Anxiety
     Dosage: 2 MG; EVERY NIGHT?DAILY DOSE: 1 DOSAGE FORM
     Route: 048
     Dates: start: 2013, end: 2014
  5. CLONAZEPAM [Suspect]
     Active Substance: CLONAZEPAM
     Indication: Seizure
     Dosage: 2 MG; EVERY NIGHT?DAILY DOSE: 1 DOSAGE FORM
     Route: 048
     Dates: start: 2013, end: 2014
  6. CLONAZEPAM [Suspect]
     Active Substance: CLONAZEPAM
     Indication: Insomnia
     Dosage: 2 MG; EVERY NIGHT?DAILY DOSE: 1 DOSAGE FORM
     Route: 048
     Dates: start: 2013, end: 2014
  7. CLONAZEPAM [Suspect]
     Active Substance: CLONAZEPAM
     Indication: Anxiety
     Dosage: 0.5 MG
     Route: 048
     Dates: start: 2014, end: 2016
  8. CLONAZEPAM [Suspect]
     Active Substance: CLONAZEPAM
     Indication: Seizure
     Dosage: 0.5 MG
     Route: 048
     Dates: start: 2014, end: 2016
  9. CLONAZEPAM [Suspect]
     Active Substance: CLONAZEPAM
     Indication: Insomnia
     Dosage: 0.5 MG
     Route: 048
     Dates: start: 2014, end: 2016
  10. CLONAZEPAM [Suspect]
     Active Substance: CLONAZEPAM
     Indication: Anxiety
     Dosage: 0.5 MG?DAILY DOSE: 2 DOSAGE FORM
     Route: 048
     Dates: start: 2016
  11. CLONAZEPAM [Suspect]
     Active Substance: CLONAZEPAM
     Indication: Seizure
     Dosage: 0.5 MG?DAILY DOSE: 2 DOSAGE FORM
     Route: 048
     Dates: start: 2016
  12. CLONAZEPAM [Suspect]
     Active Substance: CLONAZEPAM
     Indication: Insomnia
     Dosage: 0.5 MG?DAILY DOSE: 2 DOSAGE FORM
     Route: 048
     Dates: start: 2016
  13. OMEPRAZOLE [Suspect]
     Active Substance: OMEPRAZOLE
     Indication: Gastritis
     Route: 048
     Dates: start: 2013, end: 2013
  14. DOMPERIDONE [Suspect]
     Active Substance: DOMPERIDONE
     Dosage: DAILY DOSE: 1 DOSAGE FORM
     Route: 048
     Dates: start: 2021, end: 2021
  15. AMITRIPTYLINE HYDROCHLORIDE [Suspect]
     Active Substance: AMITRIPTYLINE HYDROCHLORIDE
     Dosage: DAILY DOSE: 1 DOSAGE FORM
     Route: 048
     Dates: start: 20200506, end: 20230326

REACTIONS (22)
  - Blindness [Recovered/Resolved]
  - Cardiac failure [Not Recovered/Not Resolved]
  - Near death experience [Recovered/Resolved]
  - Product use in unapproved indication [Not Recovered/Not Resolved]
  - Rash [Not Recovered/Not Resolved]
  - Anxiety [Not Recovered/Not Resolved]
  - Somnolence [Not Recovered/Not Resolved]
  - Irritability [Not Recovered/Not Resolved]
  - Lip pain [Not Recovered/Not Resolved]
  - Aphthous ulcer [Not Recovered/Not Resolved]
  - Feeling abnormal [Not Recovered/Not Resolved]
  - Dyspnoea [Not Recovered/Not Resolved]
  - Swelling [Not Recovered/Not Resolved]
  - Onychomadesis [Recovered/Resolved]
  - Muscle spasms [Recovered/Resolved]
  - Cardiomegaly [Not Recovered/Not Resolved]
  - Weight increased [Not Recovered/Not Resolved]
  - Malaise [Recovered/Resolved]
  - Vomiting [Recovered/Resolved]
  - Drug intolerance [Unknown]
  - Confusional state [Unknown]
  - Headache [Unknown]

NARRATIVE: CASE EVENT DATE: 20130101
